FAERS Safety Report 9059329 (Version 4)
Quarter: 2013Q1

REPORT INFORMATION
  Report Type: Report from Study
  Country: US (occurrence: US)
  Receive Date: 20130211
  Receipt Date: 20130320
  Transmission Date: 20140127
  Serious: No
  Sender: FDA-Public Use
  Company Number: US-VERTEX PHARMACEUTICALS INC.-2013-001791

PATIENT
  Age: 57 None
  Sex: Female
  Weight: 86 kg

DRUGS (8)
  1. VX-950 (TELAPREVIR) [Suspect]
     Indication: HEPATITIS C
     Dosage: 750 MG, TID
     Route: 048
  2. RIBAVIRIN [Suspect]
     Indication: HEPATITIS C
  3. PEGASYS [Suspect]
     Indication: HEPATITIS C
  4. ARIXTRA [Concomitant]
     Dosage: 7.5/0.6
  5. EFFEXOR [Concomitant]
     Dosage: 100 MG, UNK
  6. DIFLUCAN [Concomitant]
     Dosage: 50 MG, UNK
  7. ZOFRAN [Concomitant]
     Dosage: 4 MG, UNK
  8. FIORICET [Concomitant]

REACTIONS (17)
  - Pyrexia [Recovered/Resolved]
  - Glossitis [Unknown]
  - Pain [Recovered/Resolved]
  - Stomatitis [Unknown]
  - Aggression [Unknown]
  - Mood altered [Unknown]
  - Weight decreased [Unknown]
  - Constipation [Unknown]
  - Oral candidiasis [Unknown]
  - Blood potassium decreased [Unknown]
  - Rash [Unknown]
  - Erythema [Unknown]
  - Vomiting [Unknown]
  - Pruritus [Unknown]
  - Nausea [Unknown]
  - Dysgeusia [Unknown]
  - Diarrhoea [Unknown]
